FAERS Safety Report 19804818 (Version 1)
Quarter: 2021Q3

REPORT INFORMATION
  Report Type: Report from Study
  Country: GB (occurrence: GB)
  Receive Date: 20210908
  Receipt Date: 20210908
  Transmission Date: 20211014
  Serious: Yes (Hospitalization, Other)
  Sender: FDA-Public Use
  Company Number: GB-PFIZER INC-202101101481

PATIENT
  Age: 37 Year
  Sex: Female
  Weight: 74.5 kg

DRUGS (8)
  1. CARBOPLATIN. [Suspect]
     Active Substance: CARBOPLATIN
     Indication: SMALL CELL LUNG CANCER EXTENSIVE STAGE
     Dosage: 790 MG
     Route: 065
     Dates: start: 20201210
  2. BEVACIZUMAB. [Concomitant]
     Active Substance: BEVACIZUMAB
  3. ATEZOLIZUMAB. [Suspect]
     Active Substance: ATEZOLIZUMAB
     Indication: SMALL CELL LUNG CANCER EXTENSIVE STAGE
     Dosage: 1200 MG, EVERY 3 WEEKS
     Route: 041
     Dates: start: 20201210
  4. CARBOPLATIN. [Concomitant]
     Active Substance: CARBOPLATIN
     Indication: NEOPLASM MALIGNANT
  5. PACLITAXEL. [Concomitant]
     Active Substance: PACLITAXEL
     Indication: NEOPLASM MALIGNANT
  6. ATEZOLIZUMAB. [Concomitant]
     Active Substance: ATEZOLIZUMAB
     Indication: NEOPLASM MALIGNANT
     Route: 065
  7. ALECTINIB. [Concomitant]
     Active Substance: ALECTINIB
  8. LORLATINIB [Concomitant]
     Active Substance: LORLATINIB
     Indication: NEOPLASM MALIGNANT

REACTIONS (4)
  - Rash [Unknown]
  - Dermatitis [Recovered/Resolved]
  - Dermatitis [Recovered/Resolved]
  - Arthritis [Unknown]

NARRATIVE: CASE EVENT DATE: 20201219
